FAERS Safety Report 25031142 (Version 2)
Quarter: 2025Q1

REPORT INFORMATION
  Report Type: Spontaneous
  Country: US (occurrence: US)
  Receive Date: 20250303
  Receipt Date: 20250310
  Transmission Date: 20250408
  Serious: No
  Sender: TORRENT PHARMA INC.
  Company Number: US-TORRENT-00014237

PATIENT
  Age: 35 Year
  Sex: Female
  Weight: 88 kg

DRUGS (6)
  1. TIOPRONIN [Suspect]
     Active Substance: TIOPRONIN
     Indication: Cystinuria
     Dosage: DAILY DOSE: 900 MG, 300 MG TABLETS 1 TABLET 3 TIMES A DAY.
     Route: 048
     Dates: start: 20240531
  2. CAPTOPRIL [Concomitant]
     Active Substance: CAPTOPRIL
     Indication: Blood pressure measurement
     Dosage: 100 MG-TWICE A DAY
     Route: 065
  3. CLINDAMYCIN [Concomitant]
     Active Substance: CLINDAMYCIN
     Indication: Pharyngitis streptococcal
     Dosage: 300 MG 1 TABLET 3?TIMES A DAY FOR 7 DAYS.
     Route: 065
  4. METOPROLOL SUCCINATE [Concomitant]
     Active Substance: METOPROLOL SUCCINATE
     Indication: Blood pressure measurement
     Dosage: 100 MG-TWICE A DAY
     Route: 065
  5. POTASSIUM CITRATE [Concomitant]
     Active Substance: POTASSIUM CITRATE
     Indication: Nephrolithiasis
     Dosage: 10 MEQ, 3 TABLETS TWICE A DAY
     Route: 065
  6. TYLENOL [Concomitant]
     Active Substance: ACETAMINOPHEN
     Indication: Pain
     Route: 065

REACTIONS (2)
  - Pharyngitis streptococcal [Unknown]
  - Ear pain [Unknown]

NARRATIVE: CASE EVENT DATE: 20250213
